FAERS Safety Report 9535849 (Version 2)
Quarter: 2013Q4

REPORT INFORMATION
  Report Type: Spontaneous
  Country: AR (occurrence: AR)
  Receive Date: 20130919
  Receipt Date: 20131215
  Transmission Date: 20140711
  Serious: Yes (Other)
  Sender: FDA-Public Use
  Company Number: AR-AMGEN-ARGSP2013065555

PATIENT
  Age: 68 Year
  Sex: Female

DRUGS (7)
  1. ENBREL [Suspect]
     Indication: RHEUMATOID ARTHRITIS
     Dosage: 50 MG, WEEKLY
     Route: 065
     Dates: start: 20080425, end: 201307
  2. DELTISONA B                        /00049601/ [Concomitant]
     Dosage: 4 MG, 1X/DAY
  3. DIOXAFLEX                          /00372302/ [Concomitant]
     Dosage: UNK
  4. PANTUS [Concomitant]
     Dosage: UNK
  5. ALPLAX [Concomitant]
     Dosage: 0.5 MG, 1X/DAY
  6. FILARTROS [Concomitant]
     Dosage: UNK
  7. DIUREX                             /00022001/ [Concomitant]
     Dosage: UNK

REACTIONS (6)
  - Cardiomegaly [Not Recovered/Not Resolved]
  - Arterial disorder [Not Recovered/Not Resolved]
  - Lung disorder [Recovered/Resolved]
  - Arrhythmia [Not Recovered/Not Resolved]
  - Pulmonary fibrosis [Not Recovered/Not Resolved]
  - Pneumonia [Recovered/Resolved]
